FAERS Safety Report 25474972 (Version 2)
Quarter: 2025Q3

REPORT INFORMATION
  Report Type: Spontaneous
  Country: EU (occurrence: EU)
  Receive Date: 20250624
  Receipt Date: 20250701
  Transmission Date: 20251020
  Serious: Yes (Other)
  Sender: SANOFI AVENTIS
  Company Number: EU-CHIESI-2025CHF03569

PATIENT
  Age: 74 Year
  Sex: Male

DRUGS (13)
  1. LEVOFLOXACIN [Suspect]
     Active Substance: LEVOFLOXACIN
  2. METFORMIN HYDROCHLORIDE [Suspect]
     Active Substance: METFORMIN HYDROCHLORIDE
  3. CEFTRIAXONE [Suspect]
     Active Substance: CEFTRIAXONE
  4. ATORVASTATIN [Suspect]
     Active Substance: ATORVASTATIN
  5. DEXAMETHASONE [Suspect]
     Active Substance: DEXAMETHASONE
  6. ATENOLOL [Suspect]
     Active Substance: ATENOLOL
  7. INSULIN HUMAN NOS [Suspect]
     Active Substance: INSULIN HUMAN
  8. ASPIRIN [Suspect]
     Active Substance: ASPIRIN
  9. ENOXAPARIN SODIUM [Suspect]
     Active Substance: ENOXAPARIN SODIUM
  10. HYDROCHLOROTHIAZIDE\VALSARTAN [Suspect]
     Active Substance: HYDROCHLOROTHIAZIDE\VALSARTAN
     Indication: Product used for unknown indication
  11. CEFTOBIPROLE [Suspect]
     Active Substance: CEFTOBIPROLE
     Indication: Pneumonia
     Dosage: 1500 MG, QD
     Route: 042
  12. DAPAGLIFLOZIN PROPANEDIOL\METFORMIN HYDROCHLORIDE [Suspect]
     Active Substance: DAPAGLIFLOZIN PROPANEDIOL\METFORMIN HYDROCHLORIDE
     Indication: Product used for unknown indication
  13. TOCILIZUMAB [Suspect]
     Active Substance: TOCILIZUMAB

REACTIONS (1)
  - Cholestasis [Recovering/Resolving]
